FAERS Safety Report 8027830-1 (Version None)
Quarter: 2012Q1

REPORT INFORMATION
  Report Type: 
  Country: None (occurrence: None)
  Receive Date: 20120104
  Receipt Date: 20111219
  Transmission Date: 20120608
  Serious: Yes (Hospitalization)
  Sender: FDA-Public Use
  Company Number: 2011IN000351

PATIENT
  Age: 69 Year
  Sex: Male

DRUGS (1)
  1. JAKAFI [Suspect]
     Dosage: 20 MG, BID, ORAL
     Route: 048
     Dates: start: 20111215

REACTIONS (1)
  - PNEUMONITIS [None]
